FAERS Safety Report 4320989-9 (Version None)
Quarter: 2004Q1

REPORT INFORMATION
  Report Type: 
  Country: None (occurrence: None)
  Receive Date: 20040315
  Receipt Date: 20030903
  Transmission Date: 20041129
  Serious: Yes (Other)
  Sender: FDA-Public Use
  Company Number: PHEH2003US08032

PATIENT
  Sex: Female

DRUGS (2)
  1. TRILEPTAL [Suspect]
     Indication: BIPOLAR DISORDER
     Dosage: 450 MG, QD, ORAL
     Route: 048
  2. EFFEXOR [Suspect]
     Indication: BIPOLAR DISORDER

REACTIONS (1)
  - DYSTONIA [None]
